FAERS Safety Report 8378814-5 (Version None)
Quarter: 2012Q2

REPORT INFORMATION
  Report Type: 
  Country: None (occurrence: None)
  Receive Date: 20120523
  Receipt Date: 20120515
  Transmission Date: 20120825
  Serious: Yes (Hospitalization)
  Sender: FDA-Public Use
  Company Number: US-BIOGENIDEC-2012BI008174

PATIENT
  Age: 57 Year
  Sex: Female

DRUGS (2)
  1. AVONEX [Suspect]
     Route: 030
  2. AVONEX [Suspect]
     Indication: MULTIPLE SCLEROSIS
     Route: 030
     Dates: start: 20010201

REACTIONS (6)
  - GAIT DISTURBANCE [None]
  - OEDEMA PERIPHERAL [None]
  - MULTIPLE SCLEROSIS RELAPSE [None]
  - MENTAL IMPAIRMENT [None]
  - NERVE COMPRESSION [None]
  - FEAR [None]
